FAERS Safety Report 13177366 (Version 1)
Quarter: 2017Q1

REPORT INFORMATION
  Report Type: Report from Study
  Country: US (occurrence: US)
  Receive Date: 20170201
  Receipt Date: 20170201
  Transmission Date: 20170428
  Serious: No
  Sender: FDA-Public Use
  Company Number: US-EXELIXIS-CABO-16006009

PATIENT
  Sex: Female
  Weight: 127.7 kg

DRUGS (1)
  1. COMETRIQ [Suspect]
     Active Substance: CABOZANTINIB S-MALATE
     Indication: RENAL CANCER
     Dosage: 60 MG, QD
     Route: 048
     Dates: start: 20160202, end: 201603

REACTIONS (9)
  - Peripheral swelling [Unknown]
  - Oral mucosal blistering [Unknown]
  - Skin haemorrhage [Unknown]
  - Weight decreased [Unknown]
  - Abdominal pain upper [Unknown]
  - Blood urine present [Unknown]
  - Genital blister [Unknown]
  - Off label use [Unknown]
  - Burning sensation [Unknown]
